FAERS Safety Report 10170630 (Version 1)
Quarter: 2014Q2

REPORT INFORMATION
  Report Type: Report from Study
  Country: US (occurrence: US)
  Receive Date: 20140514
  Receipt Date: 20140514
  Transmission Date: 20141212
  Serious: Yes (Other)
  Sender: FDA-Public Use
  Company Number: US-ROCHE-1399026

PATIENT
  Age: 11 Year
  Sex: Male
  Weight: 45.5 kg

DRUGS (2)
  1. NUTROPIN AQ [Suspect]
     Indication: BODY HEIGHT BELOW NORMAL
     Route: 058
  2. CONCERTA [Concomitant]
     Route: 065

REACTIONS (6)
  - Growth retardation [Unknown]
  - Lymphadenopathy [Unknown]
  - Headache [Unknown]
  - Exostosis [Unknown]
  - Insulin-like growth factor increased [Unknown]
  - Gynaecomastia [Unknown]
